FAERS Safety Report 5377404-6 (Version None)
Quarter: 2007Q3

REPORT INFORMATION
  Report Type: 
  Country: None (occurrence: None)
  Receive Date: 20070703
  Receipt Date: 20070628
  Transmission Date: 20080115
  Serious: Yes (Hospitalization)
  Sender: FDA-Public Use
  Company Number: A0661376A

PATIENT
  Sex: Female
  Weight: 3.5 kg

DRUGS (3)
  1. COMBIVIR [Suspect]
     Indication: HIV INFECTION
     Dates: start: 20060619
  2. INH [Suspect]
     Indication: DRUG USE FOR UNKNOWN INDICATION
  3. LOPINAVIR [Concomitant]
     Indication: HIV INFECTION
     Dates: start: 20070619

REACTIONS (3)
  - APLASTIC ANAEMIA [None]
  - DEVELOPMENTAL DELAY [None]
  - DRUG EXPOSURE DURING PREGNANCY [None]
